FAERS Safety Report 15230830 (Version 2)
Quarter: 2018Q3

REPORT INFORMATION
  Report Type: Report from Study
  Country: JP (occurrence: JP)
  Receive Date: 20180802
  Receipt Date: 20180808
  Transmission Date: 20181010
  Serious: Yes (Other)
  Sender: FDA-Public Use
  Company Number: JP-009507513-1712JPN002224J

PATIENT
  Age: 56 Year
  Sex: Male
  Weight: 48 kg

DRUGS (2)
  1. ZOLEDRONIC ACID HYDRATE [Concomitant]
     Active Substance: ZOLEDRONIC ACID
     Dosage: UNK
     Route: 051
  2. KEYTRUDA [Suspect]
     Active Substance: PEMBROLIZUMAB
     Indication: LUNG ADENOCARCINOMA
     Dosage: 200 MG, Q3W
     Route: 041
     Dates: start: 20170530, end: 20171107

REACTIONS (5)
  - Nephritis [Unknown]
  - Renal impairment [Not Recovered/Not Resolved]
  - Haematuria [Unknown]
  - Hypothyroidism [Recovering/Resolving]
  - Protein urine present [Unknown]

NARRATIVE: CASE EVENT DATE: 201711
